FAERS Safety Report 23695172 (Version 2)
Quarter: 2024Q2

REPORT INFORMATION
  Report Type: Spontaneous
  Country: CN (occurrence: None)
  Receive Date: 20240402
  Receipt Date: 20240528
  Transmission Date: 20240715
  Serious: Yes (Death, Other)
  Sender: FDA-Public Use
  Company Number: CN-ROCHE-3533149

PATIENT
  Age: 49 Year
  Sex: Male
  Weight: 78 kg

DRUGS (9)
  1. POLIVY [Suspect]
     Active Substance: POLATUZUMAB VEDOTIN-PIIQ
     Indication: Diffuse large B-cell lymphoma
     Dosage: 14-APR-2023, 05-MAY-2023, 31-MAY-2023, 26-JUN-2023
     Route: 041
     Dates: start: 20230414
  2. MABTHERA [Suspect]
     Active Substance: RITUXIMAB
     Indication: Diffuse large B-cell lymphoma
     Dosage: 14-APR-2023, 05-MAY-2023, 31-MAY-2023, 26-JUN-2023
     Route: 041
     Dates: start: 20230414
  3. CYCLOPHOSPHAMIDE [Concomitant]
     Active Substance: CYCLOPHOSPHAMIDE
     Indication: Diffuse large B-cell lymphoma
     Dosage: 14-APR-2023, 05-MAY-2023, 31-MAY-2023, 26-JUN-2023
     Route: 041
     Dates: start: 20230414
  4. DOXORUBICIN [Concomitant]
     Active Substance: DOXORUBICIN
     Indication: Diffuse large B-cell lymphoma
     Dosage: 14-APR-2023, 05-MAY-2023, 31-MAY-2023, 26-JUN-2023
     Route: 041
     Dates: start: 20230414
  5. PREDNISONE [Concomitant]
     Active Substance: PREDNISONE
     Indication: Diffuse large B-cell lymphoma
     Dosage: 14-APR-2023, 05-MAY-2023, 31-MAY-2023, 26-JUN-2023
     Route: 048
     Dates: start: 20230414
  6. UNSPECIFIED INGREDIENT [Concomitant]
     Active Substance: UNSPECIFIED INGREDIENT
     Indication: Infection prophylaxis
     Route: 048
  7. ISONIAZID [Concomitant]
     Active Substance: ISONIAZID
     Indication: Antibiotic prophylaxis
     Route: 048
  8. POSACONAZOLE [Concomitant]
     Active Substance: POSACONAZOLE
  9. DEXAMETHASONE [Concomitant]
     Active Substance: DEXAMETHASONE
     Route: 041
     Dates: start: 20230413

REACTIONS (5)
  - HIV-associated neurocognitive disorder [Unknown]
  - Respiratory failure [Fatal]
  - Agranulocytosis [Unknown]
  - Pyrexia [Unknown]
  - Platelet count decreased [Unknown]

NARRATIVE: CASE EVENT DATE: 20230809
